FAERS Safety Report 13568407 (Version 2)
Quarter: 2017Q2

REPORT INFORMATION
  Report Type: Spontaneous
  Country: FR (occurrence: FR)
  Receive Date: 20170522
  Receipt Date: 20170529
  Transmission Date: 20170830
  Serious: Yes (Hospitalization, Other)
  Sender: FDA-Public Use
  Company Number: FR-UCBSA-2017019279

PATIENT
  Age: 52 Year
  Sex: Male
  Weight: 71 kg

DRUGS (5)
  1. VIMPAT [Suspect]
     Active Substance: LACOSAMIDE
     Indication: EPILEPTIC ENCEPHALOPATHY
     Dosage: 100 MG, 2X/DAY (BID)
     Route: 042
     Dates: start: 20170425, end: 20170428
  2. VIMPAT [Suspect]
     Active Substance: LACOSAMIDE
     Indication: OFF LABEL USE
  3. PRODILANTIN [Suspect]
     Active Substance: FOSPHENYTOIN SODIUM
     Dosage: 400MG AS MAINTENANCE DOSE
     Route: 042
     Dates: start: 201704, end: 20170428
  4. KEPPRA [Concomitant]
     Active Substance: LEVETIRACETAM
     Indication: PRODUCT USED FOR UNKNOWN INDICATION
     Dosage: 1 G, 3X/DAY (TID)
     Route: 042
     Dates: start: 2013
  5. PRODILANTIN [Suspect]
     Active Substance: FOSPHENYTOIN SODIUM
     Indication: EARLY INFANTILE EPILEPTIC ENCEPHALOPATHY WITH BURST-SUPPRESSION
     Dosage: 1200 MG, BOLUS
     Route: 042
     Dates: start: 20170425, end: 201704

REACTIONS (3)
  - Toxic skin eruption [Recovering/Resolving]
  - Off label use [Unknown]
  - Drug ineffective for unapproved indication [Unknown]

NARRATIVE: CASE EVENT DATE: 201704
